FAERS Safety Report 7979491-5 (Version None)
Quarter: 2011Q4

REPORT INFORMATION
  Report Type: 
  Country: None (occurrence: None)
  Receive Date: 20111214
  Receipt Date: 20111213
  Transmission Date: 20120403
  Serious: Yes (Death, Other)
  Sender: FDA-Public Use
  Company Number: PHHY2010AU092659

PATIENT
  Sex: Female
  Weight: 43.5 kg

DRUGS (1)
  1. ZOLEDRONOC ACID [Suspect]
     Dosage: 5 MG YEARLY
     Route: 042

REACTIONS (3)
  - DEATH [None]
  - LOSS OF CONSCIOUSNESS [None]
  - CIRCULATORY COLLAPSE [None]
